FAERS Safety Report 9791219 (Version 1)
Quarter: 2014Q1

REPORT INFORMATION
  Report Type: Spontaneous
  Country: GB (occurrence: GB)
  Receive Date: 20140101
  Receipt Date: 20140101
  Transmission Date: 20141002
  Serious: Yes (Hospitalization)
  Sender: FDA-Public Use
  Company Number: GB-ROCHE-1325279

PATIENT
  Age: 36 Year
  Sex: Female
  Weight: 84 kg

DRUGS (3)
  1. PEGASYS [Suspect]
     Indication: HEPATITIS C
     Route: 058
     Dates: start: 20130913
  2. RIBAVIRIN [Suspect]
     Indication: HEPATITIS C
     Route: 048
     Dates: start: 20130913, end: 20131216
  3. METHADONE [Concomitant]

REACTIONS (2)
  - Convulsion [Recovering/Resolving]
  - Loss of consciousness [Recovering/Resolving]
